FAERS Safety Report 4354116-9 (Version None)
Quarter: 2004Q2

REPORT INFORMATION
  Report Type: 
  Country: None (occurrence: None)
  Receive Date: 20040503
  Receipt Date: 20040421
  Transmission Date: 20050107
  Serious: Yes (Other)
  Sender: FDA-Public Use
  Company Number: A0508037A

PATIENT
  Age: 52 Year
  Sex: Female

DRUGS (4)
  1. NICODERM CQ [Suspect]
     Indication: EX-SMOKER
     Dosage: 21 MG/TRANSDERMAL
     Route: 062
     Dates: start: 20040128, end: 20040301
  2. NICODERM CQ [Suspect]
     Indication: EX-SMOKER
     Dosage: TRANSDERMAL
     Route: 062
     Dates: start: 20040301
  3. METFORMIN HYDROCHLORIDE [Concomitant]
  4. ANTI-DIABETIC MEDICATION [Concomitant]

REACTIONS (4)
  - DIZZINESS [None]
  - EXCESSIVE EXERCISE [None]
  - NUCLEAR MAGNETIC RESONANCE IMAGING BRAIN ABNORMAL [None]
  - VISION BLURRED [None]
